FAERS Safety Report 21376731 (Version 1)
Quarter: 2022Q3

REPORT INFORMATION
  Report Type: Spontaneous
  Country: BR (occurrence: BR)
  Receive Date: 20220926
  Receipt Date: 20220926
  Transmission Date: 20221026
  Serious: Yes (Other)
  Sender: FDA-Public Use
  Company Number: BR-BIOMARINAP-BR-2022-145704

PATIENT

DRUGS (1)
  1. BRINEURA [Suspect]
     Active Substance: CERLIPONASE ALFA
     Indication: Product used for unknown indication
     Dosage: UNK, QOW
     Route: 020
     Dates: start: 202108

REACTIONS (6)
  - General physical health deterioration [Unknown]
  - Seizure [Unknown]
  - Myoclonus [Unknown]
  - Language disorder [Unknown]
  - Drug ineffective [Unknown]
  - Off label use [Unknown]
